FAERS Safety Report 12047293 (Version 5)
Quarter: 2020Q1

REPORT INFORMATION
  Report Type: Report from Study
  Country: CA (occurrence: CA)
  Receive Date: 20160209
  Receipt Date: 20200221
  Transmission Date: 20200409
  Serious: Yes (Other)
  Sender: FDA-Public Use
  Company Number: CA-ROCHE-1540030

PATIENT
  Age: 35 Year
  Sex: Female

DRUGS (8)
  1. METHOTREXATE. [Suspect]
     Active Substance: METHOTREXATE
     Indication: PRODUCT USED FOR UNKNOWN INDICATION
     Route: 065
     Dates: start: 201308, end: 2015
  2. EMTEC [Concomitant]
  3. ACTEMRA [Suspect]
     Active Substance: TOCILIZUMAB
     Route: 058
     Dates: start: 20150328, end: 201505
  4. ACTEMRA [Suspect]
     Active Substance: TOCILIZUMAB
     Route: 058
     Dates: start: 20160816, end: 2019
  5. LYRICA [Concomitant]
     Active Substance: PREGABALIN
  6. NADOLOL. [Concomitant]
     Active Substance: NADOLOL
  7. PREDNISONE. [Concomitant]
     Active Substance: PREDNISONE
  8. ACTEMRA [Suspect]
     Active Substance: TOCILIZUMAB
     Indication: STILL^S DISEASE
     Dosage: ON HOLD
     Route: 058
     Dates: start: 20141103, end: 2019

REACTIONS (9)
  - Pneumonia [Recovered/Resolved]
  - Pneumonia [Unknown]
  - Fracture [Unknown]
  - Joint injury [Unknown]
  - Fall [Unknown]
  - Arthralgia [Unknown]
  - Fatigue [Not Recovered/Not Resolved]
  - Pneumothorax [Not Recovered/Not Resolved]
  - Off label use [Unknown]

NARRATIVE: CASE EVENT DATE: 201412
